FAERS Safety Report 8778777 (Version 2)
Quarter: 2012Q4

REPORT INFORMATION
  Report Type: 
  Country: US (occurrence: US)
  Receive Date: 20120912
  Receipt Date: 20120927
  Transmission Date: 20130627
  Serious: No
  Sender: FDA-Public Use
  Company Number: US-PFIZER INC-2012224036

PATIENT
  Age: 61 Year
  Sex: Female
  Weight: 73.92 kg

DRUGS (3)
  1. PRISTIQ [Suspect]
     Indication: DEPRESSION
     Dosage: 50 mg, daily
     Route: 048
  2. PRISTIQ [Suspect]
     Indication: STRESS
     Dosage: half tablet of 50mg daily
     Route: 048
  3. ASPIRIN [Concomitant]
     Indication: CARDIOVASCULAR DISORDER
     Dosage: 81 mg, daily

REACTIONS (2)
  - Migraine [Unknown]
  - Drug administration error [Unknown]
